FAERS Safety Report 13754203 (Version 1)
Quarter: 2017Q3

REPORT INFORMATION
  Report Type: Spontaneous
  Country: GB (occurrence: GB)
  Receive Date: 20170714
  Receipt Date: 20170714
  Transmission Date: 20171127
  Serious: Yes (Disabling)
  Sender: FDA-Public Use
  Company Number: GB-TORRENT-00015422

PATIENT
  Age: 58 Year
  Sex: Female
  Weight: 81 kg

DRUGS (19)
  1. CARBOCISTEINE [Concomitant]
     Active Substance: CARBOCYSTEINE
  2. CLOPIDOGREL [Suspect]
     Active Substance: CLOPIDOGREL BISULFATE
  3. LACTULOSE. [Concomitant]
     Active Substance: LACTULOSE
  4. PREDNISOLONE. [Concomitant]
     Active Substance: PREDNISOLONE
  5. SYMBICORT [Concomitant]
     Active Substance: BUDESONIDE\FORMOTEROL FUMARATE DIHYDRATE
  6. ACCRETE D3 [Concomitant]
  7. DILTIAZEM. [Concomitant]
     Active Substance: DILTIAZEM
  8. NAPROXEN. [Concomitant]
     Active Substance: NAPROXEN
  9. TILDIEM [Concomitant]
     Active Substance: DILTIAZEM HYDROCHLORIDE
  10. GAVISCON ADVANCE [Concomitant]
     Active Substance: POTASSIUM BICARBONATE\SODIUM ALGINATE
  11. HYLO-TEAR [Concomitant]
  12. SALBUTAMOL [Concomitant]
     Active Substance: ALBUTEROL
  13. CANDESARTAN. [Concomitant]
     Active Substance: CANDESARTAN
  14. ESTRIOL [Concomitant]
     Active Substance: ESTRIOL
  15. ISOSORBIDE MONONITRATE. [Concomitant]
     Active Substance: ISOSORBIDE MONONITRATE
  16. RABEPRAZOLE [Concomitant]
     Active Substance: RABEPRAZOLE
  17. TIOTROPIUM [Concomitant]
     Active Substance: TIOTROPIUM
  18. FOSTAIR [Concomitant]
     Active Substance: BECLOMETHASONE\FORMOTEROL
  19. DOXYCYCLINE. [Concomitant]
     Active Substance: DOXYCYCLINE

REACTIONS (1)
  - Lip swelling [Recovered/Resolved]

NARRATIVE: CASE EVENT DATE: 20170630
